FAERS Safety Report 7907055-8 (Version None)
Quarter: 2011Q4

REPORT INFORMATION
  Report Type: 
  Country: None (occurrence: None)
  Receive Date: 20111110
  Receipt Date: 20111101
  Transmission Date: 20120403
  Serious: Yes (Other)
  Sender: FDA-Public Use
  Company Number: JP-ASTRAZENECA-2011SE64217

PATIENT
  Sex: Male

DRUGS (3)
  1. CARBOPLATIN [Suspect]
     Dosage: DOSE UNKNOWN
     Route: 065
  2. IRESSA [Suspect]
     Indication: NON-SMALL CELL LUNG CANCER
     Dosage: DOSE UNKNOWN
     Route: 048
  3. TS-1 [Suspect]
     Dosage: DOSE UNKNOWN
     Route: 048

REACTIONS (2)
  - HYPOKALAEMIA [None]
  - DIARRHOEA [None]
